FAERS Safety Report 8386559-0 (Version None)
Quarter: 2012Q2

REPORT INFORMATION
  Report Type: 
  Country: None (occurrence: None)
  Receive Date: 20120525
  Receipt Date: 20110722
  Transmission Date: 20120825
  Serious: No
  Sender: FDA-Public Use
  Company Number: US-GLAXOSMITHKLINE-A0938021A

PATIENT
  Age: 81 Year
  Sex: Female

DRUGS (9)
  1. ATENOLOL [Concomitant]
  2. MAXZIDE [Concomitant]
  3. POTASSIUM CHLORIDE [Concomitant]
  4. ONGLYZA [Concomitant]
  5. CALCIUM [Concomitant]
  6. TAGAMET [Concomitant]
  7. ENALAPRIL MALEATE [Concomitant]
  8. VERAMYST [Suspect]
     Indication: SINUS CONGESTION
     Route: 045
     Dates: start: 20110718
  9. COUMADIN [Concomitant]

REACTIONS (5)
  - EPISTAXIS [None]
  - LARYNGITIS [None]
  - DRY THROAT [None]
  - TINNITUS [None]
  - COUGH [None]
